FAERS Safety Report 18442427 (Version 6)
Quarter: 2021Q1

REPORT INFORMATION
  Report Type: Spontaneous
  Country: PT (occurrence: PT)
  Receive Date: 20201029
  Receipt Date: 20210301
  Transmission Date: 20210419
  Serious: Yes (Disabling, Other)
  Sender: FDA-Public Use
  Company Number: PT-KOWA-20EU003082

PATIENT

DRUGS (4)
  1. ALIPZA [Suspect]
     Active Substance: PITAVASTATIN
     Indication: TYPE IIA HYPERLIPIDAEMIA
     Dosage: 2 MG, QD
     Route: 048
     Dates: start: 2015, end: 2015
  2. AERIUS (DESLORATADINE) [Concomitant]
     Active Substance: DESLORATADINE
     Indication: PRODUCT USED FOR UNKNOWN INDICATION
     Route: 048
  3. VALERIAN [VALERIANA OFFICINALIS] [Concomitant]
     Active Substance: VALERIAN
     Indication: ANXIOLYTIC THERAPY
  4. BROMALEX [Suspect]
     Active Substance: BROMAZEPAM
     Indication: PRODUCT USED FOR UNKNOWN INDICATION
     Dosage: 3 MG, QD
     Route: 048
     Dates: start: 20200828, end: 20200906

REACTIONS (26)
  - Dyspnoea [Recovered/Resolved]
  - Anxiety [Recovered/Resolved]
  - Pollakiuria [Unknown]
  - Female sexual dysfunction [Not Recovered/Not Resolved]
  - Hypoaesthesia [Recovered/Resolved]
  - Apathy [Recovered/Resolved]
  - Eczema [Recovered/Resolved]
  - Urinary retention [Not Recovered/Not Resolved]
  - Genital paraesthesia [Recovered/Resolved]
  - Micturition urgency [Recovered/Resolved]
  - Throat irritation [Recovered/Resolved]
  - Eye pruritus [Recovered/Resolved]
  - Constipation [Not Recovered/Not Resolved]
  - Dizziness [Recovered/Resolved]
  - Abdominal pain [Recovered/Resolved]
  - Neuropathy peripheral [Unknown]
  - Faecaloma [Not Recovered/Not Resolved]
  - Disturbance in sexual arousal [Not Recovered/Not Resolved]
  - Rash papular [Recovered/Resolved]
  - Diplopia [Recovered/Resolved]
  - Tinnitus [Not Recovered/Not Resolved]
  - Anorgasmia [Not Recovered/Not Resolved]
  - Functional gastrointestinal disorder [Recovered/Resolved]
  - Diarrhoea [Recovered/Resolved]
  - Pain in extremity [Recovered/Resolved]
  - Gait disturbance [Unknown]

NARRATIVE: CASE EVENT DATE: 2015
